FAERS Safety Report 8605583-3 (Version None)
Quarter: 2012Q3

REPORT INFORMATION
  Report Type: 
  Country: None (occurrence: None)
  Receive Date: 20120820
  Receipt Date: 20120806
  Transmission Date: 20120928
  Serious: Yes (Hospitalization, Other)
  Sender: FDA-Public Use
  Company Number: CL-ASTRAZENECA-2012SE57863

PATIENT
  Age: 7 Month
  Sex: Female
  Weight: 4.8 kg

DRUGS (2)
  1. SYNAGIS [Suspect]
     Route: 030
     Dates: start: 20120618, end: 20120618
  2. SYNAGIS [Suspect]
     Indication: ANTIVIRAL PROPHYLAXIS
     Route: 030
     Dates: start: 20120517, end: 20120517

REACTIONS (13)
  - MECHANICAL VENTILATION COMPLICATION [None]
  - USE OF ACCESSORY RESPIRATORY MUSCLES [None]
  - CYANOSIS [None]
  - PRODUCTIVE COUGH [None]
  - DYSPNOEA [None]
  - GENERAL PHYSICAL HEALTH DETERIORATION [None]
  - RESPIRATORY FAILURE [None]
  - STRIDOR [None]
  - BRONCHIAL OBSTRUCTION [None]
  - OEDEMA [None]
  - WITHDRAWAL SYNDROME [None]
  - OXYGEN SATURATION DECREASED [None]
  - HYPOALBUMINAEMIA [None]
